FAERS Safety Report 8447062-2 (Version None)
Quarter: 2012Q2

REPORT INFORMATION
  Report Type: 
  Country: None (occurrence: None)
  Receive Date: 20120619
  Receipt Date: 20120615
  Transmission Date: 20120825
  Serious: Yes (Death)
  Sender: FDA-Public Use
  Company Number: PHHY2012DK016564

PATIENT
  Sex: Male

DRUGS (3)
  1. METHOTREXATE [Suspect]
     Indication: RHEUMATOID ARTHRITIS
     Dosage: 17.5 MG, QW
     Route: 048
     Dates: start: 20060215, end: 20091008
  2. SULFASALAZINE [Concomitant]
     Dosage: 2 G DAILY
     Dates: start: 20050422, end: 20090908
  3. REMICADE [Suspect]
     Indication: RHEUMATOID ARTHRITIS
     Dosage: 200 MG, IN WEEK 0, 2, 6 AND 8
     Dates: start: 20090618, end: 20090721

REACTIONS (2)
  - METASTATIC NEOPLASM [None]
  - SMALL CELL LUNG CANCER STAGE UNSPECIFIED [None]
